FAERS Safety Report 18642703 (Version 3)
Quarter: 2021Q1

REPORT INFORMATION
  Report Type: Spontaneous
  Country: RU (occurrence: RU)
  Receive Date: 20201221
  Receipt Date: 20210105
  Transmission Date: 20210419
  Serious: Yes (Hospitalization)
  Sender: FDA-Public Use
  Company Number: RU-TEVA-2020-RU-1861002

PATIENT
  Age: 4 Year
  Sex: Male

DRUGS (16)
  1. DOXORUBICIN [Suspect]
     Active Substance: DOXORUBICIN
     Indication: NEUROBLASTOMA
     Dosage: PART OF N6 COURSE; RECEIVED 6 COURSES
     Route: 065
  2. CYCLOPHOSPHAMIDE. [Suspect]
     Active Substance: CYCLOPHOSPHAMIDE
     Indication: NEUROBLASTOMA
     Dosage: PART OF POST?CONSOLIDATION THERAPY
     Route: 065
  3. DACARBAZINE. [Suspect]
     Active Substance: DACARBAZINE
     Indication: NEUROBLASTOMA
     Dosage: PART OF N6 COURSE; RECEIVED 6 COURSES
     Route: 065
  4. TEMOZOLOMIDE. [Suspect]
     Active Substance: TEMOZOLOMIDE
     Indication: NEUROBLASTOMA
     Dosage: SECOND LINE THERAPY PART OF REINDUCTION THERAPY REGIMEN; RECEIVED 6 COURSES
     Route: 065
  5. MELPHALAN. [Suspect]
     Active Substance: MELPHALAN
     Indication: NEUROBLASTOMA
     Dosage: PART OF CONSOLIDATION THERAPY; HIGH?DOSE
     Route: 065
  6. TOPOTECAN [Suspect]
     Active Substance: TOPOTECAN HYDROCHLORIDE
     Indication: NEUROBLASTOMA
     Dosage: SECOND LINE THERAPY PART OF REINDUCTION THERAPY REGIMEN; RECEIVED 6 COURSES
     Route: 065
  7. 13?CIS?RETINOIC ACID [Suspect]
     Active Substance: ISOTRETINOIN
     Indication: NEUROBLASTOMA
     Dosage: DIFFERENTIAL THERAPY ; 9 COURSES
     Route: 065
  8. VINBLASTINE [Suspect]
     Active Substance: VINBLASTINE
     Indication: NEUROBLASTOMA
     Dosage: PART OF POST?CONSOLIDATION REGIMEN; LOW?DOSE
     Route: 065
  9. CYCLOPHOSPHAMIDE. [Suspect]
     Active Substance: CYCLOPHOSPHAMIDE
     Indication: NEUROBLASTOMA
     Dosage: PART OF N6 COURSE; RECEIVED 6 COURSES
     Route: 065
  10. VINCRISTINE [Suspect]
     Active Substance: VINCRISTINE
     Indication: NEUROBLASTOMA
     Dosage: PART OF N5/N6 COURSE; RECEIVED 6 COURSES
     Route: 065
  11. ETOPOSIDE. [Suspect]
     Active Substance: ETOPOSIDE
     Indication: NEUROBLASTOMA
     Dosage: PART OF POST?CONSOLIDATION REGIMEN
     Route: 065
  12. CYCLOPHOSPHAMIDE. [Suspect]
     Active Substance: CYCLOPHOSPHAMIDE
     Indication: NEUROBLASTOMA
     Dosage: PART OF N7 COURSE; RECEIVED 4 COURSES
     Route: 065
  13. CARBOPLATIN. [Suspect]
     Active Substance: CARBOPLATIN
     Indication: NEUROBLASTOMA
     Dosage: PART OF N5 COURSE; RECEIVED 6 COURSES
     Route: 065
  14. ETOPOSIDE. [Suspect]
     Active Substance: ETOPOSIDE
     Indication: NEUROBLASTOMA
     Dosage: PART OF N5 COURSE; RECEIVED 6 COURSES
     Route: 065
  15. TREOSULFAN [Suspect]
     Active Substance: TREOSULFAN
     Indication: NEUROBLASTOMA
     Dosage: PART OF CONSOLIDATION THERAPY; HIGH?DOSE
     Route: 065
  16. CELECOXIB. [Suspect]
     Active Substance: CELECOXIB
     Indication: NEUROBLASTOMA
     Dosage: PART OF POST?CONSOLIDATION REGIMEN
     Route: 065

REACTIONS (2)
  - Acute myeloid leukaemia [Recovering/Resolving]
  - Septic shock [Recovering/Resolving]
